FAERS Safety Report 8559281-5 (Version None)
Quarter: 2012Q3

REPORT INFORMATION
  Report Type: 
  Country: None (occurrence: None)
  Receive Date: 20120802
  Receipt Date: 20120727
  Transmission Date: 20120928
  Serious: Yes (Other)
  Sender: FDA-Public Use
  Company Number: PHEH2012US014953

PATIENT
  Sex: Male
  Weight: 77.098 kg

DRUGS (17)
  1. COENZYME Q10 [Concomitant]
  2. METAMUCIL-2 [Concomitant]
  3. FLAXSEED OIL [Concomitant]
  4. IRON [Concomitant]
  5. METOPROLOL TARTRATE [Concomitant]
  6. CALCIUM [Concomitant]
  7. SIMVASTATIN [Concomitant]
  8. TASIGNA [Suspect]
     Dosage: 150 MG, Q48H
     Route: 048
  9. VITAMIN B COMPLEX CAP [Concomitant]
  10. MULTI-VITAMINS [Concomitant]
  11. TASIGNA [Suspect]
     Indication: CHRONIC MYELOID LEUKAEMIA
     Dosage: 300 MG, BID
     Route: 048
     Dates: start: 20120713
  12. GLUCOSAMINE [Concomitant]
  13. FISH OIL [Concomitant]
  14. CARDURA [Concomitant]
  15. ACCUPRIL [Concomitant]
  16. MAGNESIUM [Concomitant]
  17. ASPIRIN [Concomitant]

REACTIONS (4)
  - CONSTIPATION [None]
  - ASTHENIA [None]
  - DEHYDRATION [None]
  - PRURITUS [None]
